FAERS Safety Report 6616794-0 (Version None)
Quarter: 2010Q1

REPORT INFORMATION
  Report Type: 
  Country: None (occurrence: None)
  Receive Date: 20100301
  Receipt Date: 20100222
  Transmission Date: 20100710
  Serious: Yes (Hospitalization)
  Sender: FDA-Public Use
  Company Number: 2010SP011271

PATIENT
  Age: 62 Year
  Sex: Male
  Weight: 94.8 kg

DRUGS (10)
  1. TEMODAR [Suspect]
     Indication: GLIOBLASTOMA MULTIFORME
     Dates: start: 20091028
  2. VELCADE [Suspect]
     Indication: GLIOBLASTOMA MULTIFORME
     Dates: start: 20091001
  3. NEXIUM [Concomitant]
  4. CELEXA [Concomitant]
  5. LISINOPRIL [Concomitant]
  6. GLYBURIDE [Concomitant]
  7. KEPPRA [Concomitant]
  8. NORCO [Concomitant]
  9. SENOKOT [Concomitant]
  10. DECADRON [Concomitant]

REACTIONS (1)
  - ATRIAL FIBRILLATION [None]
